FAERS Safety Report 6016547-0 (Version None)
Quarter: 2008Q4

REPORT INFORMATION
  Report Type: 
  Country: None (occurrence: None)
  Receive Date: 20081218
  Receipt Date: 20081201
  Transmission Date: 20090506
  Serious: Yes (Other)
  Sender: FDA-Public Use
  Company Number: 8040236

PATIENT
  Age: 76 Year
  Sex: Male

DRUGS (3)
  1. KEPPRA [Suspect]
  2. MORPHINE HYDROCHLORIDE [Suspect]
  3. KETAMINE HYDROCHLORIDE [Suspect]

REACTIONS (3)
  - ANXIETY [None]
  - CONFUSIONAL STATE [None]
  - TEARFULNESS [None]
